FAERS Safety Report 19059582 (Version 1)
Quarter: 2021Q1

REPORT INFORMATION
  Report Type: Spontaneous
  Country: QA (occurrence: QA)
  Receive Date: 20210326
  Receipt Date: 20210326
  Transmission Date: 20210420
  Serious: Yes (Death, Other)
  Sender: FDA-Public Use
  Company Number: QA-LUPIN PHARMACEUTICALS INC.-2021-03777

PATIENT
  Age: 24 Year
  Sex: Male
  Weight: 60 kg

DRUGS (11)
  1. CHLOROQUINE. [Suspect]
     Active Substance: CHLOROQUINE
     Indication: COVID-19
     Dosage: UNK
     Route: 065
     Dates: start: 202004
  2. PANTOPRAZOLE [Concomitant]
     Active Substance: PANTOPRAZOLE
     Indication: DRUG THERAPY
     Dosage: UNK
     Route: 065
     Dates: start: 202004
  3. FIBRINOGEN [Concomitant]
     Active Substance: FIBRINOGEN HUMAN
     Indication: COAGULOPATHY
     Dosage: UNK
     Route: 016
     Dates: start: 202004
  4. AZITHROMYCIN ANHYDROUS. [Suspect]
     Active Substance: AZITHROMYCIN ANHYDROUS
     Indication: COVID-19
     Dosage: UNK
     Route: 065
     Dates: start: 202004
  5. LACTULOSE. [Concomitant]
     Active Substance: LACTULOSE
     Indication: DRUG THERAPY
     Dosage: UNK
     Route: 065
     Dates: start: 202004
  6. OSELTAMIVIR [Suspect]
     Active Substance: OSELTAMIVIR
     Indication: COVID-19
     Dosage: UNK
     Route: 065
     Dates: start: 202004
  7. FRESH FROZEN PLASMA [Concomitant]
     Active Substance: HUMAN PLASMA
     Indication: COAGULOPATHY
     Dosage: UNK
     Route: 065
     Dates: start: 202004
  8. ACETYLCYSTEINE. [Concomitant]
     Active Substance: ACETYLCYSTEINE
     Indication: DRUG THERAPY
     Dosage: UNK
     Route: 065
     Dates: start: 202004
  9. TOCILIZUMAB. [Suspect]
     Active Substance: TOCILIZUMAB
     Indication: COVID-19
     Dosage: UNK
     Route: 065
     Dates: start: 202004
  10. RIFAXIMIN. [Concomitant]
     Active Substance: RIFAXIMIN
     Indication: DRUG THERAPY
     Dosage: UNK
     Route: 065
     Dates: start: 202004
  11. PHYTONADIONE. [Concomitant]
     Active Substance: PHYTONADIONE
     Indication: DRUG THERAPY
     Dosage: 10 MILLIGRAM
     Route: 065
     Dates: start: 202004

REACTIONS (1)
  - Off label use [Unknown]

NARRATIVE: CASE EVENT DATE: 202004
